FAERS Safety Report 5426509-X (Version None)
Quarter: 2007Q3

REPORT INFORMATION
  Report Type: 
  Country: None (occurrence: None)
  Receive Date: 20070731
  Receipt Date: 20070421
  Transmission Date: 20080115
  Serious: No
  Sender: FDA-Public Use
  Company Number: US200704004867

PATIENT
  Age: 66 Year
  Sex: Male

DRUGS (6)
  1. BYETTA [Suspect]
     Indication: TYPE 2 DIABETES MELLITUS
     Dosage: 5 UG, 2/D, SUBCUTANEOUS; 10 UG, 2/D, SUBCUTANEOUS
     Route: 058
     Dates: start: 20061201, end: 20070301
  2. BYETTA [Suspect]
     Indication: TYPE 2 DIABETES MELLITUS
     Dosage: 5 UG, 2/D, SUBCUTANEOUS; 10 UG, 2/D, SUBCUTANEOUS
     Route: 058
     Dates: start: 20070301
  3. EXENATIDE (EXENATIDE PEN) [Concomitant]
  4. METFORMIN HCL [Concomitant]
  5. GLIPIZIDE [Concomitant]
  6. DIOVAN (HYDROCHLORIDE, VALSARTAN) [Concomitant]

REACTIONS (5)
  - ANOREXIA [None]
  - BLOOD GLUCOSE INCREASED [None]
  - FEELING ABNORMAL [None]
  - NAUSEA [None]
  - WEIGHT FLUCTUATION [None]
